FAERS Safety Report 4330414-X (Version None)
Quarter: 2004Q2

REPORT INFORMATION
  Report Type: 
  Country: None (occurrence: None)
  Receive Date: 20040402
  Receipt Date: 20030304
  Transmission Date: 20050107
  Serious: No
  Sender: FDA-Public Use
  Company Number: US-BRISTOL-MYERS SQUIBB COMPANY-12201984

PATIENT
  Age: 71 Year
  Sex: Male

DRUGS (6)
  1. HYDROXYUREA [Suspect]
     Indication: THROMBOCYTOPENIA
     Dates: start: 20030101
  2. HYTRIN [Concomitant]
  3. DEMADEX [Concomitant]
  4. ALLOPURINOL [Concomitant]
  5. NOVAMIN [Concomitant]
  6. ALTACE [Concomitant]

REACTIONS (1)
  - NAIL DISORDER [None]
